FAERS Safety Report 7015303-4 (Version None)
Quarter: 2010Q3

REPORT INFORMATION
  Report Type: 
  Country: None (occurrence: None)
  Receive Date: 20100927
  Receipt Date: 20100916
  Transmission Date: 20110219
  Serious: Yes (Other)
  Sender: FDA-Public Use
  Company Number: BR-US-EMD SERONO, INC.-230266J09BRA

PATIENT
  Sex: Female

DRUGS (4)
  1. REBIF [Suspect]
     Indication: RELAPSING-REMITTING MULTIPLE SCLEROSIS
     Route: 058
     Dates: start: 20090814, end: 20091101
  2. OTHER [Concomitant]
     Dates: start: 20091014
  3. ALIVIUM [Concomitant]
     Indication: HEADACHE
  4. ATENOLOL [Concomitant]
     Indication: BLOOD PRESSURE FLUCTUATION

REACTIONS (4)
  - ALANINE AMINOTRANSFERASE ABNORMAL [None]
  - ASPARTATE AMINOTRANSFERASE ABNORMAL [None]
  - HEPATITIS [None]
  - MULTIPLE SCLEROSIS RELAPSE [None]
